FAERS Safety Report 11533090 (Version 2)
Quarter: 2015Q4

REPORT INFORMATION
  Report Type: Report from Study
  Country: BR (occurrence: BR)
  Receive Date: 20150921
  Receipt Date: 20151006
  Transmission Date: 20160304
  Serious: Yes (Death)
  Sender: FDA-Public Use
  Company Number: PHHY2015BR113739

PATIENT
  Age: 92 Year
  Sex: Male
  Weight: 73 kg

DRUGS (3)
  1. ALENIA                             /01538101/ [Concomitant]
     Active Substance: BUDESONIDE\FORMOTEROL FUMARATE
     Indication: INFECTIOUS PLEURAL EFFUSION
     Dosage: 1 INHALATION, QD, 1 YEAR AGO
     Route: 055
  2. EXELON PATCH [Suspect]
     Active Substance: RIVASTIGMINE
     Indication: DEMENTIA
     Dosage: 10 MG, 1 ADHESIVE, DAILY
     Route: 062
     Dates: start: 201505, end: 201507
  3. ENALAPRIL [Concomitant]
     Active Substance: ENALAPRIL
     Indication: HYPERTENSION
     Dosage: 5 MG, 1 TABLET, STARTED 6 YEARS AGO
     Route: 048

REACTIONS (1)
  - Organ failure [Fatal]

NARRATIVE: CASE EVENT DATE: 20150808
